FAERS Safety Report 4599832-9 (Version None)
Quarter: 2005Q1

REPORT INFORMATION
  Report Type: 
  Country: None (occurrence: None)
  Receive Date: 20050303
  Receipt Date: 20050218
  Transmission Date: 20050727
  Serious: Yes (Death, Other)
  Sender: FDA-Public Use
  Company Number: A-CH2005-08594

PATIENT
  Age: 6 Year
  Sex: Male

DRUGS (7)
  1. TRACLEER [Suspect]
     Indication: PULMONARY HYPERTENSION
     Dosage: 31.25 MG, QD, ORAL; 62.5 MG, OD, ORAL
     Route: 048
     Dates: start: 20040107, end: 20040120
  2. TRACLEER [Suspect]
     Indication: PULMONARY HYPERTENSION
     Dosage: 31.25 MG, QD, ORAL; 62.5 MG, OD, ORAL
     Route: 048
     Dates: start: 20040121, end: 20041126
  3. DIGITOXIN TAB [Concomitant]
  4. SILDENAFIL (SILDENAFIL) [Concomitant]
  5. ESIDRIX [Concomitant]
  6. ALDACTONE [Concomitant]
  7. ACETYLSALICYLIC ACID SRT [Concomitant]

REACTIONS (6)
  - ALANINE AMINOTRANSFERASE INCREASED [None]
  - ASPARTATE AMINOTRANSFERASE INCREASED [None]
  - CEREBRAL HAEMORRHAGE [None]
  - CONVULSION [None]
  - FEBRILE INFECTION [None]
  - GENERAL PHYSICAL HEALTH DETERIORATION [None]
